FAERS Safety Report 6847963-2 (Version None)
Quarter: 2010Q3

REPORT INFORMATION
  Report Type: 
  Country: None (occurrence: None)
  Receive Date: 20100716
  Receipt Date: 20100714
  Transmission Date: 20110219
  Serious: Yes (Hospitalization)
  Sender: FDA-Public Use
  Company Number: A0870408A

PATIENT
  Age: 3 Year
  Sex: Male

DRUGS (1)
  1. NICORETTE (MINT) [Suspect]
     Route: 048

REACTIONS (4)
  - ACCIDENTAL EXPOSURE [None]
  - BLOOD PRESSURE DECREASED [None]
  - SKIN DISCOLOURATION [None]
  - VOMITING [None]
